FAERS Safety Report 10571550 (Version 4)
Quarter: 2016Q1

REPORT INFORMATION
  Report Type: Report from Study
  Country: BR (occurrence: BR)
  Receive Date: 20141107
  Receipt Date: 20160314
  Transmission Date: 20160525
  Serious: Yes (Other)
  Sender: FDA-Public Use
  Company Number: PHHY2014BR144777

PATIENT
  Sex: Female
  Weight: 67 kg

DRUGS (2)
  1. SANDOSTATIN LAR DEPOT [Suspect]
     Active Substance: OCTREOTIDE ACETATE
     Dosage: 20 MG, QMO
     Route: 030
     Dates: start: 201412
  2. SANDOSTATIN LAR DEPOT [Suspect]
     Active Substance: OCTREOTIDE ACETATE
     Indication: NEUROENDOCRINE TUMOUR
     Dosage: 1 DF, QMO (BETWEEN 26 TO 28 DAYS)
     Route: 030
     Dates: start: 201205, end: 201410

REACTIONS (9)
  - Gait disturbance [Recovered/Resolved]
  - Pain [Recovered/Resolved]
  - Nodule [Recovered/Resolved]
  - Hypoaesthesia oral [Recovered/Resolved]
  - Parathyroid disorder [Unknown]
  - Inflammation [Unknown]
  - Speech disorder [Unknown]
  - Pain [Recovered/Resolved]
  - Hypersomnia [Recovered/Resolved]

NARRATIVE: CASE EVENT DATE: 2012
